FAERS Safety Report 25179063 (Version 1)
Quarter: 2025Q2

REPORT INFORMATION
  Report Type: Other
  Country: US (occurrence: US)
  Receive Date: 20250409
  Receipt Date: 20250409
  Transmission Date: 20250716
  Serious: Yes (Life-Threatening, Hospitalization, Other)
  Sender: EMD SERONO INC
  Company Number: US-Merck Healthcare KGaA-2025016716

PATIENT
  Age: 75 Year
  Sex: Male

DRUGS (1)
  1. METFORMIN [Suspect]
     Active Substance: METFORMIN HYDROCHLORIDE
     Indication: Type 2 diabetes mellitus

REACTIONS (5)
  - Distributive shock [Recovered/Resolved]
  - Acute kidney injury [Recovering/Resolving]
  - Blood glucose decreased [Unknown]
  - Toxicity to various agents [Not Recovered/Not Resolved]
  - Lactic acidosis [Unknown]
